FAERS Safety Report 7421448-7 (Version None)
Quarter: 2011Q2

REPORT INFORMATION
  Report Type: 
  Country: None (occurrence: None)
  Receive Date: 20110418
  Receipt Date: 20110322
  Transmission Date: 20111010
  Serious: No
  Sender: FDA-Public Use
  Company Number: US-B.I. PHARMACEUTICALS,INC./RIDGEFIELD-2011-BP-08885BP

PATIENT
  Sex: Female

DRUGS (5)
  1. ZOLPIDEM [Concomitant]
     Indication: SLEEP DISORDER
  2. LANSOPRAZOLE [Concomitant]
     Indication: GASTROOESOPHAGEAL REFLUX DISEASE
  3. CIPTADINE [Concomitant]
     Indication: MULTIPLE ALLERGIES
  4. ZANTAC 150 [Suspect]
     Indication: GASTROOESOPHAGEAL REFLUX DISEASE
     Dosage: 150 MG
     Route: 048
     Dates: start: 20110321, end: 20110321
  5. BIRTH CONTROL PILLS [Concomitant]
     Indication: PROPHYLAXIS

REACTIONS (2)
  - RASH [None]
  - PRURITUS [None]
